FAERS Safety Report 17179237 (Version 7)
Quarter: 2020Q3

REPORT INFORMATION
  Report Type: Report from Study
  Country: US (occurrence: US)
  Receive Date: 20191219
  Receipt Date: 20200723
  Transmission Date: 20201102
  Serious: Yes (Other)
  Sender: FDA-Public Use
  Company Number: NVSC2019US073660

PATIENT
  Age: 75 Year
  Sex: Male

DRUGS (4)
  1. BEOVU [Suspect]
     Active Substance: BROLUCIZUMAB-DBLL
     Indication: NEOVASCULAR AGE-RELATED MACULAR DEGENERATION
     Dosage: 1 DF (6MG/0.05CC), QMO
     Route: 031
     Dates: start: 20191111
  2. BEOVU [Suspect]
     Active Substance: BROLUCIZUMAB-DBLL
     Dosage: 1 DF (6MG/0.05CC), QMO
     Route: 031
     Dates: start: 20200106
  3. CEPHALEXIN. [Concomitant]
     Active Substance: CEPHALEXIN
     Indication: URINARY TRACT INFECTION
     Route: 065
  4. BEOVU [Suspect]
     Active Substance: BROLUCIZUMAB-DBLL
     Dosage: 1 DF (6MG/ 0.05CC), QMO
     Route: 031
     Dates: start: 20191209

REACTIONS (9)
  - Cough [Unknown]
  - Pneumonia [Unknown]
  - Retinal haemorrhage [Recovering/Resolving]
  - Injection site discomfort [Recovered/Resolved]
  - Visual impairment [Recovering/Resolving]
  - Contusion [Not Recovered/Not Resolved]
  - Rhinorrhoea [Unknown]
  - Wheezing [Unknown]
  - Eye swelling [Unknown]

NARRATIVE: CASE EVENT DATE: 20191209
